FAERS Safety Report 5828918-3 (Version None)
Quarter: 2008Q3

REPORT INFORMATION
  Report Type: 
  Country: None (occurrence: None)
  Receive Date: 20080731
  Receipt Date: 20080730
  Transmission Date: 20090109
  Serious: Yes (Other)
  Sender: FDA-Public Use
  Company Number: FR-JNJFOC-20080706981

PATIENT
  Age: 74 Year
  Sex: Male

DRUGS (3)
  1. GALANTAMINE HYDROBROMIDE [Suspect]
     Indication: DEMENTIA ALZHEIMER'S TYPE
     Dosage: 16MG-8MG-0MG
     Route: 048
  2. PREVISCAN [Suspect]
  3. PREVISCAN [Suspect]
     Indication: ATRIAL FIBRILLATION

REACTIONS (4)
  - ATRIAL FIBRILLATION [None]
  - EPISTAXIS [None]
  - PULMONARY EMBOLISM [None]
  - THROMBOSIS [None]
